FAERS Safety Report 6963674-7 (Version None)
Quarter: 2010Q3

REPORT INFORMATION
  Report Type: 
  Country: None (occurrence: None)
  Receive Date: 20100830
  Receipt Date: 20100811
  Transmission Date: 20110219
  Serious: Yes (Death)
  Sender: FDA-Public Use
  Company Number: FK0201000333

PATIENT
  Age: 14 Year
  Sex: Female

DRUGS (1)
  1. METHOTREXATE [Suspect]
     Indication: ACUTE LYMPHOCYTIC LEUKAEMIA
     Dosage: (2000 MG/M2,OVER 20 HOURS)

REACTIONS (3)
  - LUNG INFILTRATION [None]
  - MULTI-ORGAN FAILURE [None]
  - RENAL FAILURE [None]
